FAERS Safety Report 25202953 (Version 1)
Quarter: 2025Q2

REPORT INFORMATION
  Report Type: Report from Study
  Country: US (occurrence: US)
  Receive Date: 20250416
  Receipt Date: 20250416
  Transmission Date: 20250716
  Serious: Yes (Death)
  Sender: BAYER
  Company Number: US-BAYER-2025A050448

PATIENT
  Age: 88 Year
  Sex: Female

DRUGS (1)
  1. KERENDIA [Suspect]
     Active Substance: FINERENONE
     Indication: Chronic kidney disease
     Dosage: 20 MG, QD
     Route: 048
     Dates: start: 20250203, end: 20250411

REACTIONS (1)
  - Death [Fatal]

NARRATIVE: CASE EVENT DATE: 20250411
